FAERS Safety Report 23129692 (Version 1)
Quarter: 2023Q4

REPORT INFORMATION
  Report Type: Report from Study
  Country: JP (occurrence: JP)
  Receive Date: 20231031
  Receipt Date: 20231031
  Transmission Date: 20240109
  Serious: Yes (Other)
  Sender: FDA-Public Use
  Company Number: JP-TAKEDA-2023TJP013717

PATIENT
  Age: 52 Year
  Sex: Male
  Weight: 56 kg

DRUGS (3)
  1. PANITUMUMAB [Suspect]
     Active Substance: PANITUMUMAB
     Indication: Rectal adenocarcinoma
     Dosage: 340 MILLIGRAM, Q2WK
     Route: 065
     Dates: start: 20201211, end: 20210108
  2. IRINOTECAN [Suspect]
     Active Substance: IRINOTECAN
     Indication: Rectal adenocarcinoma
     Dosage: 230 MILLIGRAM, Q2WEEKS
     Route: 065
     Dates: start: 20201211, end: 20201225
  3. IRINOTECAN [Suspect]
     Active Substance: IRINOTECAN
     Dosage: 187 MILLIGRAM, Q2WEEKS
     Route: 065
     Dates: start: 20210108, end: 20210108

REACTIONS (11)
  - Aspartate aminotransferase increased [Not Recovered/Not Resolved]
  - Blood alkaline phosphatase increased [Not Recovered/Not Resolved]
  - Blood creatinine increased [Unknown]
  - Adjusted calcium decreased [Not Recovered/Not Resolved]
  - White blood cell count increased [Unknown]
  - Blood lactate dehydrogenase increased [Not Recovered/Not Resolved]
  - Blood magnesium decreased [Unknown]
  - Blood potassium increased [Not Recovered/Not Resolved]
  - Blood alkaline phosphatase increased [Not Recovered/Not Resolved]
  - Aspartate aminotransferase increased [Not Recovered/Not Resolved]
  - Haemoglobin decreased [Not Recovered/Not Resolved]
